FAERS Safety Report 18436747 (Version 2)
Quarter: 2020Q4

REPORT INFORMATION
  Report Type: Report from Study
  Country: IT (occurrence: IT)
  Receive Date: 20201028
  Receipt Date: 20201102
  Transmission Date: 20210114
  Serious: Yes (Death, Other)
  Sender: FDA-Public Use
  Company Number: IT-PFIZER INC-2020416025

PATIENT
  Age: 76 Year
  Sex: Female

DRUGS (11)
  1. DELTACORTENE [Suspect]
     Active Substance: PREDNISONE
     Dosage: 5 MG, 1X/DAY
     Dates: start: 20150922
  2. MINIAS [Concomitant]
     Active Substance: LORMETAZEPAM
     Dosage: EVENING,, DAILY
  3. DELTACORTENE [Suspect]
     Active Substance: PREDNISONE
     Indication: RHEUMATOID ARTHRITIS
     Dosage: 2.5 MG (HALF TABLET OF 5 MG)
     Dates: start: 20190611
  4. OMEPRAZOLE. [Concomitant]
     Active Substance: OMEPRAZOLE
     Dosage: 10 MG
  5. SERTRALINE [Concomitant]
     Active Substance: SERTRALINE HYDROCHLORIDE
     Dosage: 50 MG, DAILY
  6. METHOTREXATE SODIUM. [Suspect]
     Active Substance: METHOTREXATE SODIUM
     Indication: RHEUMATOID ARTHRITIS
     Dosage: 10 MG, WEEKLY (2.5 MG 4 TABLETS WEEKLY, TAKING ONE DAY)
  7. DELTACORTENE [Suspect]
     Active Substance: PREDNISONE
     Dosage: 1/4 TABLET OF 25 MG
     Dates: start: 20141203
  8. FOLINA [FOLIC ACID] [Concomitant]
     Active Substance: FOLIC ACID
     Dosage: 5 MG, WEEKLY (TAKING ONE DAY)
  9. DIBASE [Concomitant]
     Active Substance: CHOLECALCIFEROL
     Dosage: 25 KIU
  10. TARGIN [Concomitant]
     Active Substance: NALOXONE HYDROCHLORIDE\OXYCODONE HYDROCHLORIDE
     Dosage: 10 MG
  11. XARELTO [Concomitant]
     Active Substance: RIVAROXABAN
     Dosage: FIRST FROM 15 MG THEN DECREASING UP TO 5 MG DAILY

REACTIONS (6)
  - Agitation [Unknown]
  - Pyrexia [Unknown]
  - COVID-19 pneumonia [Unknown]
  - Confusional state [Unknown]
  - Respiratory failure [Fatal]
  - Dyspnoea [Unknown]

NARRATIVE: CASE EVENT DATE: 2020
